FAERS Safety Report 10467658 (Version 2)
Quarter: 2014Q3

REPORT INFORMATION
  Report Type: Spontaneous
  Country: CN (occurrence: CN)
  Receive Date: 20140922
  Receipt Date: 20140922
  Transmission Date: 20150326
  Serious: Yes (Other)
  Sender: FDA-Public Use
  Company Number: CN-BAYER-2013-136456

PATIENT
  Sex: Female

DRUGS (1)
  1. YASMIN [Suspect]
     Active Substance: DROSPIRENONE\ETHINYL ESTRADIOL
     Indication: CONTRACEPTION
     Dosage: UNK
     Route: 048
     Dates: start: 201310, end: 201310

REACTIONS (4)
  - Medication error [None]
  - Maternal exposure during pregnancy [Recovered/Resolved]
  - Foetal malpresentation [None]
  - Complication of pregnancy [None]

NARRATIVE: CASE EVENT DATE: 201310
